FAERS Safety Report 6234884-1 (Version None)
Quarter: 2009Q2

REPORT INFORMATION
  Report Type: 
  Country: None (occurrence: None)
  Receive Date: 20090605
  Receipt Date: 20090526
  Transmission Date: 20091009
  Serious: Yes (Other)
  Sender: FDA-Public Use
  Company Number: AECAN200900167

PATIENT
  Age: 2 Year
  Sex: Male

DRUGS (1)
  1. GAMUNEX [Suspect]
     Indication: PRIMARY IMMUNODEFICIENCY SYNDROME
     Dosage: IV
     Route: 042
     Dates: start: 20090501

REACTIONS (4)
  - ANTI-HBC IGG ANTIBODY POSITIVE [None]
  - COMPLICATIONS OF BONE MARROW TRANSPLANT [None]
  - HEPATIC ENZYME INCREASED [None]
  - TRANSMISSION OF AN INFECTIOUS AGENT VIA A MEDICINAL PRODUCT [None]
